FAERS Safety Report 13013876 (Version 1)
Quarter: 2016Q4

REPORT INFORMATION
  Report Type: Spontaneous
  Country: US (occurrence: US)
  Receive Date: 20161209
  Receipt Date: 20161209
  Transmission Date: 20170207
  Serious: No
  Sender: FDA-Public Use
  Company Number: US-FERRINGPH-2016FE02011

PATIENT
  Age: 47 Year
  Sex: Male
  Weight: 123.7 kg

DRUGS (6)
  1. AMITRIPTYLINE [Concomitant]
     Active Substance: AMITRIPTYLINE
     Dosage: 50 MG, UNK
  2. AMBIEN [Concomitant]
     Active Substance: ZOLPIDEM TARTRATE
  3. SYNTHROID [Concomitant]
     Active Substance: LEVOTHYROXINE SODIUM
  4. CLOMID [Concomitant]
     Active Substance: CLOMIPHENE CITRATE
     Dosage: 50 MG, EVERY OTHER DAY
     Dates: start: 20160404
  5. CLONIDINE. [Concomitant]
     Active Substance: CLONIDINE
  6. MENOPUR [Suspect]
     Active Substance: FOLLICLE STIMULATING HORMONE BETA POLYPEPTIDE\LUTROPIN ALFA
     Indication: PRODUCT USED FOR UNKNOWN INDICATION
     Dosage: 75 UNITS MONDAY, WEDNESDAY, FRIDAY
     Dates: start: 201601, end: 2016

REACTIONS (3)
  - Off label use [Unknown]
  - Joint swelling [Not Recovered/Not Resolved]
  - Peripheral swelling [Not Recovered/Not Resolved]

NARRATIVE: CASE EVENT DATE: 201601
